FAERS Safety Report 17450536 (Version 1)
Quarter: 2020Q1

REPORT INFORMATION
  Report Type: Spontaneous
  Country: US (occurrence: US)
  Receive Date: 20200224
  Receipt Date: 20200224
  Transmission Date: 20200409
  Serious: No
  Sender: FDA-Public Use
  Company Number: US-BAYER-2020-031966

PATIENT
  Age: 8 Decade
  Sex: Female

DRUGS (1)
  1. CLARITIN [Suspect]
     Active Substance: LORATADINE
     Indication: TINNITUS
     Dosage: 2 DF
     Route: 048

REACTIONS (1)
  - Drug effective for unapproved indication [Unknown]
